FAERS Safety Report 15331408 (Version 1)
Quarter: 2018Q3

REPORT INFORMATION
  Report Type: Spontaneous
  Country: US (occurrence: US)
  Receive Date: 20180829
  Receipt Date: 20180829
  Transmission Date: 20181010
  Serious: No
  Sender: FDA-Public Use
  Company Number: US-009507513-1808USA006729

PATIENT
  Age: 25 Year
  Sex: Female
  Weight: 61.2 kg

DRUGS (1)
  1. NEXPLANON [Suspect]
     Active Substance: ETONOGESTREL
     Indication: CONTRACEPTION
     Dosage: 1 ROD IN LEFT ARM
     Route: 059
     Dates: start: 20140911

REACTIONS (6)
  - Muscle spasms [Not Recovered/Not Resolved]
  - Incorrect drug administration duration [Unknown]
  - No adverse event [Unknown]
  - Smear cervix abnormal [Not Recovered/Not Resolved]
  - Precancerous cells present [Not Recovered/Not Resolved]
  - Vaginal haemorrhage [Recovered/Resolved]

NARRATIVE: CASE EVENT DATE: 20170911
